FAERS Safety Report 10733722 (Version 3)
Quarter: 2015Q1

REPORT INFORMATION
  Report Type: Report from Study
  Country: DZ (occurrence: DZ)
  Receive Date: 20150123
  Receipt Date: 20150204
  Transmission Date: 20150721
  Serious: Yes (Death, Disabling, Other)
  Sender: FDA-Public Use
  Company Number: PHHY2015DZ009101

PATIENT
  Age: 62 Year
  Sex: Female
  Weight: 40 kg

DRUGS (4)
  1. FLUCONAZOL [Concomitant]
     Active Substance: FLUCONAZOLE
     Indication: STOMATITIS
     Dosage: 50 MG, QD
     Route: 065
     Dates: start: 20150115, end: 20150120
  2. SKENAN [Concomitant]
     Active Substance: MORPHINE SULFATE
     Indication: PAIN
     Dosage: 60 MG, BID
     Route: 048
     Dates: start: 20140429
  3. BRISTOPEN [Concomitant]
     Active Substance: OXACILLIN SODIUM
     Indication: SKIN INFECTION
     Dosage: 1 G, BID
     Route: 048
     Dates: start: 20150120
  4. SANDOSTATIN LAR DEPOT [Suspect]
     Active Substance: OCTREOTIDE ACETATE
     Indication: PRODUCT USED FOR UNKNOWN INDICATION
     Route: 065
     Dates: end: 201405

REACTIONS (11)
  - Thrombocytopenia [Not Recovered/Not Resolved]
  - General physical health deterioration [Unknown]
  - Hypoglycaemia [Recovered/Resolved]
  - Disease progression [Fatal]
  - Tachycardia [Unknown]
  - Hyperkalaemia [Recovered/Resolved]
  - Condition aggravated [Unknown]
  - Cyanosis [Not Recovered/Not Resolved]
  - Oedema peripheral [Not Recovered/Not Resolved]
  - Lung disorder [Unknown]
  - Angiopathy [Unknown]

NARRATIVE: CASE EVENT DATE: 20150111
